FAERS Safety Report 7052781-9 (Version None)
Quarter: 2010Q4

REPORT INFORMATION
  Report Type: 
  Country: None (occurrence: None)
  Receive Date: 20101014
  Receipt Date: 20101006
  Transmission Date: 20110411
  Serious: Yes (Hospitalization)
  Sender: FDA-Public Use
  Company Number: 2010SP053045

PATIENT
  Age: 32 Year
  Sex: Female
  Weight: 72.5755 kg

DRUGS (1)
  1. NUVARING [Suspect]
     Indication: CONTRACEPTION

REACTIONS (8)
  - ANXIETY [None]
  - DEEP VEIN THROMBOSIS [None]
  - GASTROINTESTINAL DISORDER [None]
  - HYPERCOAGULATION [None]
  - LUNG DISORDER [None]
  - PULMONARY EMBOLISM [None]
  - THROMBOSIS [None]
  - VARICOSE VEIN [None]
